FAERS Safety Report 19358305 (Version 2)
Quarter: 2021Q2

REPORT INFORMATION
  Report Type: Spontaneous
  Country: US (occurrence: US)
  Receive Date: 20210602
  Receipt Date: 20210616
  Transmission Date: 20210717
  Serious: No
  Sender: FDA-Public Use
  Company Number: US-APOTEX-2021AP011357

PATIENT
  Sex: Female

DRUGS (1)
  1. TRAVOPROST. [Suspect]
     Active Substance: TRAVOPROST
     Indication: GLAUCOMA
     Dosage: 1 DROP TO HER RIGHT EYE AT BED TIME
     Route: 047

REACTIONS (7)
  - Accidental overdose [Unknown]
  - Product substitution issue [Unknown]
  - Incorrect dose administered [Unknown]
  - Product dispensing issue [Unknown]
  - No adverse event [Unknown]
  - Drug delivery system malfunction [Unknown]
  - Product leakage [Unknown]
